FAERS Safety Report 7740295-X (Version None)
Quarter: 2011Q3

REPORT INFORMATION
  Report Type: 
  Country: None (occurrence: None)
  Receive Date: 20110909
  Receipt Date: 20110826
  Transmission Date: 20111222
  Serious: Yes (Hospitalization)
  Sender: FDA-Public Use
  Company Number: FR-BAYER-2011-079780

PATIENT
  Age: 24 Year
  Sex: Female

DRUGS (4)
  1. NAPROXEN SODIUM [Suspect]
     Indication: BACK PAIN
     Dosage: UNK
     Route: 048
     Dates: start: 20110627, end: 20110710
  2. KEPPRA [Concomitant]
     Dosage: 500 MG, TID
     Dates: start: 20110710
  3. LAMICTAL [Concomitant]
  4. KEPPRA [Concomitant]
     Dosage: 500 MG, UNK
     Dates: start: 20100901

REACTIONS (1)
  - PARTIAL SEIZURES [None]
